FAERS Safety Report 24433121 (Version 1)
Quarter: 2024Q4

REPORT INFORMATION
  Report Type: Spontaneous
  Country: TR (occurrence: TR)
  Receive Date: 20241014
  Receipt Date: 20241014
  Transmission Date: 20250115
  Serious: Yes (Other)
  Sender: AUROBINDO
  Company Number: TR-AUROBINDO-AUR-APL-2024-049092

PATIENT
  Age: 79 Year
  Sex: Female

DRUGS (6)
  1. BELINOSTAT [Suspect]
     Active Substance: BELINOSTAT
     Indication: Angioimmunoblastic T-cell lymphoma
     Dosage: 1000 MILLIGRAM/SQ. METER, ONCE A DAY  EVERY 21 DAYS FOR 5 DAYS
     Route: 065
     Dates: start: 202102
  2. IFOSFAMIDE [Concomitant]
     Active Substance: IFOSFAMIDE
     Indication: Angioimmunoblastic T-cell lymphoma
     Dosage: UNK
     Route: 065
  3. CARBOPLATIN [Concomitant]
     Active Substance: CARBOPLATIN
     Indication: Angioimmunoblastic T-cell lymphoma
     Dosage: UNK
     Route: 065
  4. ETOPOSIDE [Concomitant]
     Active Substance: ETOPOSIDE
     Indication: Angioimmunoblastic T-cell lymphoma
     Dosage: UNK
     Route: 065
  5. BENDAMUSTINE [Concomitant]
     Active Substance: BENDAMUSTINE
     Indication: Angioimmunoblastic T-cell lymphoma
     Dosage: 120 MILLIGRAM/SQ. METER, ONCE A DAY
     Route: 065
  6. PRALATREXATE [Concomitant]
     Active Substance: PRALATREXATE
     Indication: Angioimmunoblastic T-cell lymphoma
     Dosage: UNK
     Route: 065

REACTIONS (6)
  - Thrombocytopenia [Unknown]
  - Anaemia [Unknown]
  - Leukopenia [Unknown]
  - Nausea [Unknown]
  - Lymphoedema [Unknown]
  - Cellulite [Unknown]
